FAERS Safety Report 9153476 (Version 1)
Quarter: 2013Q1

REPORT INFORMATION
  Report Type: Spontaneous
  Country: IQ (occurrence: IQ)
  Receive Date: 20130311
  Receipt Date: 20130311
  Transmission Date: 20140127
  Serious: Yes (Other)
  Sender: FDA-Public Use
  Company Number: IQ-MYLANLABS-2013S1004384

PATIENT
  Age: 65 Year
  Sex: Female

DRUGS (4)
  1. FUROSEMIDE [Suspect]
     Indication: HYPERTENSION
     Dosage: AMP
     Route: 065
  2. DICLOFENAC [Suspect]
     Indication: GASTROINTESTINAL INFECTION
     Dosage: AMP
     Route: 065
  3. CIPROFLOXACIN [Suspect]
     Indication: GASTROINTESTINAL INFECTION
     Route: 042
  4. AMLODIPINE [Concomitant]
     Indication: HYPERTENSION
     Dosage: 5 MG/DAY
     Route: 065

REACTIONS (1)
  - Stevens-Johnson syndrome [Unknown]
